FAERS Safety Report 5075079-7 (Version None)
Quarter: 2006Q3

REPORT INFORMATION
  Report Type: 
  Country: None (occurrence: None)
  Receive Date: 20060809
  Receipt Date: 20060726
  Transmission Date: 20061208
  Serious: Yes (Other)
  Sender: FDA-Public Use
  Company Number: ITWYE404228JUL06

PATIENT
  Sex: Male

DRUGS (1)
  1. ENBREL [Suspect]
     Indication: PSORIASIS
     Route: 030
     Dates: start: 20060101, end: 20060709

REACTIONS (5)
  - ACCIDENTAL POISONING [None]
  - ASTHENIA [None]
  - DYSPNOEA [None]
  - HYPERTENSION [None]
  - TACHYARRHYTHMIA [None]
